FAERS Safety Report 25589421 (Version 1)
Quarter: 2025Q3

REPORT INFORMATION
  Report Type: Spontaneous
  Country: JP (occurrence: JP)
  Receive Date: 20250722
  Receipt Date: 20250722
  Transmission Date: 20251020
  Serious: Yes (Death, Hospitalization)
  Sender: Unknown Manufacturer
  Company Number: JP-STRIDES ARCOLAB LIMITED-2025OS000172

PATIENT
  Age: 65 Year
  Sex: Male

DRUGS (1)
  1. CYCLOSPORINE [Suspect]
     Active Substance: CYCLOSPORINE
     Indication: Pleurisy
     Route: 065

REACTIONS (3)
  - Condition aggravated [Fatal]
  - Therapy non-responder [Fatal]
  - Off label use [Unknown]
